FAERS Safety Report 5171038-4 (Version None)
Quarter: 2006Q4

REPORT INFORMATION
  Report Type: 
  Country: None (occurrence: None)
  Receive Date: 20061206
  Receipt Date: 20061206
  Transmission Date: 20070319
  Serious: Yes (Hospitalization)
  Sender: FDA-Public Use
  Company Number: None

PATIENT
  Age: 61 Year
  Sex: Male
  Weight: 87.5 kg

DRUGS (1)
  1. CYTARABINE [Suspect]
     Indication: ACUTE MYELOID LEUKAEMIA
     Dosage: 6GM IV BID  DAYS 1, 3 + 5
     Route: 042
     Dates: start: 20060306, end: 20060707

REACTIONS (2)
  - NEUTROPENIA [None]
  - PYREXIA [None]
